FAERS Safety Report 13752776 (Version 3)
Quarter: 2018Q1

REPORT INFORMATION
  Report Type: Spontaneous
  Country: GB (occurrence: GB)
  Receive Date: 20170714
  Receipt Date: 20180131
  Transmission Date: 20180508
  Serious: Yes (Other)
  Sender: FDA-Public Use
  Company Number: GB-MYLANLABS-2017M1042298

PATIENT
  Age: 25 Year
  Sex: Female

DRUGS (1)
  1. CLOZARIL [Suspect]
     Active Substance: CLOZAPINE
     Indication: SCHIZOPHRENIA
     Dosage: UNK
     Route: 048
     Dates: start: 20170619

REACTIONS (5)
  - Tachycardia [Unknown]
  - Lower respiratory tract infection [Unknown]
  - Anxiety [Unknown]
  - Infection [Unknown]
  - Eosinophilia [Unknown]

NARRATIVE: CASE EVENT DATE: 201707
